FAERS Safety Report 10831878 (Version 4)
Quarter: 2015Q2

REPORT INFORMATION
  Report Type: Spontaneous
  Country: US (occurrence: US)
  Receive Date: 20150219
  Receipt Date: 20150617
  Transmission Date: 20150821
  Serious: Yes (Hospitalization)
  Sender: FDA-Public Use
  Company Number: US-ACTELION-A-US2015-113040

PATIENT
  Age: 63 Year
  Sex: Female

DRUGS (4)
  1. VELETRI [Suspect]
     Active Substance: EPOPROSTENOL
     Dosage: 42 NG/KG, PER MIN
     Route: 042
  2. WARFARIN [Concomitant]
     Active Substance: WARFARIN
  3. VELETRI [Suspect]
     Active Substance: EPOPROSTENOL
     Indication: PULMONARY HYPERTENSION
     Dosage: 31 NG/KG, PER MIN
     Route: 042
     Dates: start: 20130207
  4. ASPIRIN. [Concomitant]
     Active Substance: ASPIRIN

REACTIONS (4)
  - Thoracic vertebral fracture [Unknown]
  - Ankle fracture [Unknown]
  - Device alarm issue [Recovered/Resolved]
  - Fall [Unknown]

NARRATIVE: CASE EVENT DATE: 201503
